FAERS Safety Report 18429264 (Version 1)
Quarter: 2020Q4

REPORT INFORMATION
  Report Type: Spontaneous
  Country: GB (occurrence: GB)
  Receive Date: 20201026
  Receipt Date: 20201026
  Transmission Date: 20210114
  Serious: Yes (Hospitalization)
  Sender: FDA-Public Use
  Company Number: NVSC2020GB286196

PATIENT
  Age: 54 Year
  Sex: Female

DRUGS (1)
  1. ADALIMUMAB [Suspect]
     Active Substance: ADALIMUMAB
     Indication: PSORIASIS
     Dosage: 3 DF (RECEIVED THREE DOSES, IXEKIZUMAB WAS PROMPTLY COMMENCED FOLLOWING ADMISSION DUE TO HER PREVIOU
     Route: 065

REACTIONS (4)
  - Haemodynamic instability [Recovering/Resolving]
  - Erythrodermic psoriasis [Recovered/Resolved]
  - Acute kidney injury [Recovering/Resolving]
  - Paradoxical drug reaction [Recovering/Resolving]
